FAERS Safety Report 12722415 (Version 2)
Quarter: 2016Q3

REPORT INFORMATION
  Report Type: Other
  Country: CA (occurrence: CA)
  Receive Date: 20160907
  Receipt Date: 20160920
  Transmission Date: 20161109
  Serious: Yes (Other)
  Sender: FDA-Public Use
  Company Number: CA-SHIRE-CA201610882

PATIENT
  Age: 61 Year
  Sex: Female
  Weight: 39.46 kg

DRUGS (8)
  1. MAGNESIUM [Concomitant]
     Active Substance: MAGNESIUM
     Indication: PRODUCT USED FOR UNKNOWN INDICATION
     Dosage: 7 G, 1X/WEEK INFUSED IN 500ML NS AT HOSPITAL
     Route: 041
  2. PROLIA [Concomitant]
     Active Substance: DENOSUMAB
     Indication: PRODUCT USED FOR UNKNOWN INDICATION
     Dosage: UNK, Q6MONTHS
     Route: 030
  3. VITAMIN B12 [Concomitant]
     Active Substance: CYANOCOBALAMIN
     Indication: PRODUCT USED FOR UNKNOWN INDICATION
     Dosage: 1200 MG, 1X/DAY:QD
     Route: 048
  4. AMILORIDE [Concomitant]
     Active Substance: AMILORIDE
     Indication: PRODUCT USED FOR UNKNOWN INDICATION
     Dosage: 10 MG, 1X/DAY:QD
     Route: 048
  5. NEXIUM [Concomitant]
     Active Substance: ESOMEPRAZOLE MAGNESIUM
     Indication: PRODUCT USED FOR UNKNOWN INDICATION
     Dosage: 40 MG, 1X/DAY:QD
     Route: 048
  6. TYLENOL WITH CODEINE [Concomitant]
     Active Substance: ACETAMINOPHEN\CODEINE PHOSPHATE
     Indication: PRODUCT USED FOR UNKNOWN INDICATION
     Dosage: UNK, AS REQ^D
     Route: 065
  7. NORVASC [Concomitant]
     Active Substance: AMLODIPINE BESYLATE
     Indication: PRODUCT USED FOR UNKNOWN INDICATION
     Dosage: 10 MG, 1X/DAY:QD
     Route: 048
  8. REVESTIVE [Suspect]
     Active Substance: TEDUGLUTIDE
     Indication: SHORT-BOWEL SYNDROME
     Dosage: 2.25 MG, 1X/DAY:QD
     Route: 058
     Dates: start: 20160815

REACTIONS (20)
  - Change of bowel habit [Unknown]
  - Peripheral swelling [Recovered/Resolved]
  - Musculoskeletal chest pain [Unknown]
  - Weight decreased [Recovering/Resolving]
  - Alcohol use [Unknown]
  - Fatigue [Unknown]
  - Frequent bowel movements [Unknown]
  - Urine output increased [Unknown]
  - Hypophagia [Recovering/Resolving]
  - Mental impairment [Unknown]
  - Condition aggravated [Unknown]
  - Blood pressure decreased [Unknown]
  - Abdominal discomfort [Recovering/Resolving]
  - Muscle spasms [Unknown]
  - Fistula [Unknown]
  - Gait disturbance [Unknown]
  - Repetitive speech [Unknown]
  - Gastric dilatation [Not Recovered/Not Resolved]
  - Abdominal pain lower [Recovering/Resolving]
  - Abdominal distension [Unknown]

NARRATIVE: CASE EVENT DATE: 20160815
